FAERS Safety Report 9847481 (Version 1)
Quarter: 2014Q1

REPORT INFORMATION
  Report Type: Spontaneous
  Country: FR (occurrence: FR)
  Receive Date: 20140127
  Receipt Date: 20140127
  Transmission Date: 20141002
  Serious: Yes (Hospitalization)
  Sender: FDA-Public Use
  Company Number: FR-ROCHE-1338349

PATIENT
  Age: 93 Year
  Sex: Female

DRUGS (10)
  1. ROCEPHINE [Suspect]
     Indication: BRONCHOPNEUMOPATHY
     Route: 065
     Dates: start: 20140106, end: 20140109
  2. ZOLPIDEM [Concomitant]
     Dosage: AT BEDTIME
     Route: 065
  3. TARDYFERON (FRANCE) [Concomitant]
     Route: 065
  4. SOTALOL [Concomitant]
     Route: 065
  5. CORTANCYL [Concomitant]
     Route: 065
  6. PARACETAMOL [Concomitant]
     Route: 065
  7. EUPANTOL [Concomitant]
     Route: 065
  8. MIRTAZAPINE [Concomitant]
     Route: 065
  9. LASILIX FAIBLE [Concomitant]
     Route: 065
  10. DUOPLAVIN [Concomitant]
     Route: 065

REACTIONS (1)
  - Ecchymosis [Not Recovered/Not Resolved]
